FAERS Safety Report 5740245-1 (Version None)
Quarter: 2008Q2

REPORT INFORMATION
  Report Type: 
  Country: None (occurrence: None)
  Receive Date: 20080516
  Receipt Date: 20080507
  Transmission Date: 20081010
  Serious: Yes (Other)
  Sender: FDA-Public Use
  Company Number: US-JNJFOC-20080501878

PATIENT
  Age: 10 Year
  Sex: Female

DRUGS (2)
  1. INVEGA [Suspect]
     Indication: POST-TRAUMATIC STRESS DISORDER
     Route: 048
  2. DEPAKOTE [Concomitant]
     Dosage: 125 MG DAILY IN THE AM, 500 MG DAILY IN THE PM.

REACTIONS (2)
  - AGGRESSION [None]
  - SUICIDAL IDEATION [None]
